FAERS Safety Report 8426975-1 (Version None)
Quarter: 2012Q2

REPORT INFORMATION
  Report Type: 
  Country: None (occurrence: None)
  Receive Date: 20120611
  Receipt Date: 20120606
  Transmission Date: 20120825
  Serious: Yes (Death, Hospitalization, Other)
  Sender: FDA-Public Use
  Company Number: GB-ASTRAZENECA-2012SE28461

PATIENT
  Sex: Male

DRUGS (6)
  1. ZOPICLONE [Concomitant]
     Indication: INSOMNIA
     Dates: start: 20010517
  2. ASPIRIN [Concomitant]
     Indication: HYPERTENSION
     Dates: start: 20080224
  3. CASODEX [Suspect]
     Indication: PROSTATE CANCER
     Route: 048
     Dates: start: 20120313, end: 20120428
  4. ZOLADEX [Suspect]
     Indication: PROSTATE CANCER
     Route: 058
     Dates: start: 20111201, end: 20120403
  5. NIFEDIPINE [Concomitant]
     Indication: HYPERTENSION
     Dates: start: 20080609
  6. DOXAZOSIN MESYLATE [Concomitant]
     Indication: HYPERTENSION
     Dates: start: 20050122

REACTIONS (1)
  - CARDIAC FAILURE CONGESTIVE [None]
